FAERS Safety Report 16366711 (Version 1)
Quarter: 2019Q2

REPORT INFORMATION
  Report Type: Spontaneous
  Country: NL (occurrence: NL)
  Receive Date: 20190529
  Receipt Date: 20190529
  Transmission Date: 20190711
  Serious: Yes (Hospitalization)
  Sender: FDA-Public Use
  Company Number: NL-ASTRAZENECA-2019SE78499

PATIENT
  Age: 70 Year
  Sex: Male

DRUGS (10)
  1. ROSUVASTATIN. [Concomitant]
     Active Substance: ROSUVASTATIN
     Dosage: 1 DAILY 1 TABLET
     Route: 048
     Dates: start: 20180107
  2. PANTOPRAZOL [Concomitant]
     Active Substance: PANTOPRAZOLE SODIUM
     Dosage: 1 DAILY 1 TABLET
     Route: 048
     Dates: start: 20170111
  3. METOPROLOL SUCCINATE. [Concomitant]
     Active Substance: METOPROLOL SUCCINATE
     Dosage: 1 DAILY 1 TABLET
     Route: 048
     Dates: start: 20180702
  4. TAMSULOSIN [Concomitant]
     Active Substance: TAMSULOSIN
     Dosage: 1 DAILY 1 CAPSULE
     Route: 048
     Dates: start: 20070329
  5. FINASTERIDE. [Concomitant]
     Active Substance: FINASTERIDE
     Dosage: 1 DAILY 1 TABLET
     Route: 048
     Dates: start: 20150219
  6. RAMIPRIL. [Concomitant]
     Active Substance: RAMIPRIL
     Dosage: 1 DAILY 1 TABLET
     Route: 048
     Dates: start: 20120710
  7. METFORMIN [Concomitant]
     Active Substance: METFORMIN HYDROCHLORIDE
     Dosage: 2 IN THE MORNING, 1 IN THE AFTERNOON, 1 IN THE EVENING
     Route: 048
     Dates: start: 20150402
  8. ACETYLSALICYLZUUR [Interacting]
     Active Substance: ASPIRIN
     Indication: MYOCARDIAL INFARCTION
     Dosage: 1 DAILY 1 TABLET
     Route: 048
     Dates: start: 20180605
  9. GLICLAZIDE [Concomitant]
     Active Substance: GLICLAZIDE
     Dosage: 1 DAILY 2 TABLET IN THE MORNING
     Route: 048
     Dates: start: 20160121
  10. BRILIQUE [Suspect]
     Active Substance: TICAGRELOR
     Indication: MYOCARDIAL INFARCTION
     Dosage: BID 1 TABLET
     Route: 048
     Dates: start: 20180605, end: 20190227

REACTIONS (2)
  - Drug interaction [Recovered/Resolved with Sequelae]
  - Cerebral haemorrhage [Recovered/Resolved with Sequelae]

NARRATIVE: CASE EVENT DATE: 20190227
